FAERS Safety Report 5911453-1 (Version None)
Quarter: 2008Q4

REPORT INFORMATION
  Report Type: 
  Country: None (occurrence: None)
  Receive Date: 20081007
  Receipt Date: 20080925
  Transmission Date: 20090506
  Serious: Yes (Other)
  Sender: FDA-Public Use
  Company Number: US-PFIZER INC-2008081874

PATIENT
  Sex: Female

DRUGS (4)
  1. LYRICA [Suspect]
  2. VALTREX [Suspect]
     Indication: HERPES ZOSTER
  3. VALTREX [Suspect]
     Indication: NEURALGIA
  4. OXYCONTIN [Suspect]
     Indication: NEURALGIA

REACTIONS (5)
  - CARDIAC PACEMAKER INSERTION [None]
  - DRUG INEFFECTIVE [None]
  - FEELING ABNORMAL [None]
  - HALLUCINATION [None]
  - MYOCARDIAL INFARCTION [None]
